FAERS Safety Report 6612679-4 (Version None)
Quarter: 2010Q1

REPORT INFORMATION
  Report Type: 
  Country: None (occurrence: None)
  Receive Date: 20100303
  Receipt Date: 20100301
  Transmission Date: 20100710
  Serious: Yes (Disabling, Other)
  Sender: FDA-Public Use
  Company Number: IN-ROXANE LABORATORIES, INC.-2009-DE-07586GD

PATIENT
  Sex: Female

DRUGS (7)
  1. NEVIRAPINE [Suspect]
     Indication: HIV INFECTION
     Dosage: 300 MG/ME2
  2. ZIDOVUDINE [Suspect]
     Indication: HIV INFECTION
     Dosage: 360 MG/ME2
  3. ZIDOVUDINE [Suspect]
     Indication: DRUG EXPOSURE DURING PREGNANCY
     Route: 048
  4. ZIDOVUDINE [Suspect]
     Route: 064
  5. LAMIVUDINE [Suspect]
     Indication: HIV INFECTION
     Dosage: 8 MG/KG
  6. ISONIAZID [Suspect]
     Indication: TUBERCULOSIS
     Dosage: 5 MG/KG
  7. RIFAMPICIN [Suspect]
     Indication: TUBERCULOSIS
     Dosage: 10 MG/KG

REACTIONS (8)
  - CHRONIC HEPATITIS [None]
  - DEVELOPMENTAL DELAY [None]
  - FAILURE TO THRIVE [None]
  - LACTIC ACIDOSIS [None]
  - LYMPHADENITIS [None]
  - MENTAL RETARDATION [None]
  - METABOLIC ACIDOSIS [None]
  - QUADRIPARESIS [None]
